FAERS Safety Report 5476741-4 (Version None)
Quarter: 2007Q4

REPORT INFORMATION
  Report Type: 
  Country: None (occurrence: None)
  Receive Date: 20071002
  Receipt Date: 20071002
  Transmission Date: 20080405
  Serious: No
  Sender: FDA-Public Use
  Company Number: None

PATIENT
  Sex: Female
  Weight: 94.3482 kg

DRUGS (1)
  1. LEVOTHYROXINE SODIUM [Suspect]

REACTIONS (4)
  - FEELING JITTERY [None]
  - NERVOUSNESS [None]
  - PALPITATIONS [None]
  - TREMOR [None]
